FAERS Safety Report 17298140 (Version 6)
Quarter: 2020Q2

REPORT INFORMATION
  Report Type: Report from Study
  Country: DE (occurrence: DE)
  Receive Date: 20200122
  Receipt Date: 20200423
  Transmission Date: 20200713
  Serious: Yes (Death, Hospitalization, Other)
  Sender: FDA-Public Use
  Company Number: DE-ROCHE-2372455

PATIENT
  Age: 63 Year
  Sex: Female
  Weight: 57 kg

DRUGS (2)
  1. VEMURAFENIB. [Suspect]
     Active Substance: VEMURAFENIB
     Indication: MALIGNANT MELANOMA
     Route: 048
     Dates: start: 20190722, end: 20190802
  2. COBIMETINIB. [Suspect]
     Active Substance: COBIMETINIB
     Indication: MALIGNANT MELANOMA
     Route: 048
     Dates: start: 20190722, end: 20190802

REACTIONS (26)
  - Hypophysitis [Fatal]
  - Blood lactate dehydrogenase increased [Unknown]
  - Acute kidney injury [Fatal]
  - Pleural effusion [Fatal]
  - Erythema [Fatal]
  - Erythema [Unknown]
  - Haemophagocytic lymphohistiocytosis [Fatal]
  - Nausea [Unknown]
  - Cerebral haemorrhage [Fatal]
  - Candida sepsis [Unknown]
  - Pancreatitis [Unknown]
  - Pyrexia [Recovered/Resolved]
  - Acute kidney injury [Unknown]
  - Gastrointestinal haemorrhage [Unknown]
  - Pneumonia [Unknown]
  - Candida sepsis [Fatal]
  - Drug hypersensitivity [Fatal]
  - Hepatotoxicity [Fatal]
  - Coagulopathy [Fatal]
  - Diarrhoea [Not Recovered/Not Resolved]
  - Pleural effusion [Unknown]
  - Gastrointestinal haemorrhage [Fatal]
  - Pneumonia [Fatal]
  - Pancreatitis [Fatal]
  - Speech disorder [Fatal]
  - Gastroenteritis clostridial [Fatal]

NARRATIVE: CASE EVENT DATE: 20190729
